FAERS Safety Report 25439614 (Version 1)
Quarter: 2025Q2

REPORT INFORMATION
  Report Type: Spontaneous
  Country: CA (occurrence: CA)
  Receive Date: 20250616
  Receipt Date: 20250616
  Transmission Date: 20250716
  Serious: Yes (Death, Life-Threatening, Hospitalization, Disabling, Other)
  Sender: Haleon PLC
  Company Number: CA-HALEON-2246913

PATIENT
  Age: 80 Year
  Sex: Male

DRUGS (200)
  1. FLONASE ALLERGY RELIEF [Suspect]
     Active Substance: FLUTICASONE PROPIONATE
     Indication: Product used for unknown indication
  2. FLONASE ALLERGY RELIEF [Suspect]
     Active Substance: FLUTICASONE PROPIONATE
     Indication: Nutritional supplementation
  3. ALLOPURINOL [Suspect]
     Active Substance: ALLOPURINOL
     Indication: Product used for unknown indication
     Route: 048
  4. ALLOPURINOL [Suspect]
     Active Substance: ALLOPURINOL
     Indication: Off label use
     Route: 048
  5. ALLOPURINOL [Suspect]
     Active Substance: ALLOPURINOL
     Indication: Intentional product misuse
     Route: 048
  6. ALLOPURINOL [Suspect]
     Active Substance: ALLOPURINOL
     Indication: Blood uric acid increased
  7. ALLOPURINOL [Suspect]
     Active Substance: ALLOPURINOL
  8. ALLOPURINOL [Suspect]
     Active Substance: ALLOPURINOL
     Route: 048
  9. ALLOPURINOL [Suspect]
     Active Substance: ALLOPURINOL
  10. HYDROMORPHONE [Suspect]
     Active Substance: HYDROMORPHONE
     Indication: Analgesic therapy
     Route: 058
  11. HYDROMORPHONE [Suspect]
     Active Substance: HYDROMORPHONE
     Route: 058
  12. HYDROMORPHONE [Suspect]
     Active Substance: HYDROMORPHONE
     Route: 058
  13. HYDROMORPHONE [Suspect]
     Active Substance: HYDROMORPHONE
     Route: 058
  14. HYDROMORPHONE [Suspect]
     Active Substance: HYDROMORPHONE
     Route: 058
  15. HYDROMORPHONE [Suspect]
     Active Substance: HYDROMORPHONE
     Route: 058
  16. HYDROMORPHONE [Suspect]
     Active Substance: HYDROMORPHONE
     Route: 058
  17. HYDROMORPHONE [Suspect]
     Active Substance: HYDROMORPHONE
     Route: 058
  18. HYDROMORPHONE [Suspect]
     Active Substance: HYDROMORPHONE
     Route: 058
  19. HYDROMORPHONE [Suspect]
     Active Substance: HYDROMORPHONE
     Route: 058
  20. HYDROMORPHONE [Suspect]
     Active Substance: HYDROMORPHONE
     Route: 058
  21. HYDROMORPHONE [Suspect]
     Active Substance: HYDROMORPHONE
     Route: 058
  22. HYDROMORPHONE HYDROCHLORIDE [Suspect]
     Active Substance: HYDROMORPHONE HYDROCHLORIDE
     Indication: Product used for unknown indication
     Route: 058
  23. HYDROMORPHONE HYDROCHLORIDE [Suspect]
     Active Substance: HYDROMORPHONE HYDROCHLORIDE
     Indication: Off label use
     Route: 058
  24. HYDROMORPHONE HYDROCHLORIDE [Suspect]
     Active Substance: HYDROMORPHONE HYDROCHLORIDE
     Indication: Intentional product misuse
     Route: 058
  25. HYDROMORPHONE HYDROCHLORIDE [Suspect]
     Active Substance: HYDROMORPHONE HYDROCHLORIDE
     Indication: Analgesic therapy
  26. HYDROMORPHONE HYDROCHLORIDE [Suspect]
     Active Substance: HYDROMORPHONE HYDROCHLORIDE
     Route: 058
  27. HYDROMORPHONE HYDROCHLORIDE [Suspect]
     Active Substance: HYDROMORPHONE HYDROCHLORIDE
     Route: 058
  28. HYDROMORPHONE HYDROCHLORIDE [Suspect]
     Active Substance: HYDROMORPHONE HYDROCHLORIDE
     Route: 058
  29. HYDROMORPHONE HYDROCHLORIDE [Suspect]
     Active Substance: HYDROMORPHONE HYDROCHLORIDE
     Route: 058
  30. HYDROMORPHONE HYDROCHLORIDE [Suspect]
     Active Substance: HYDROMORPHONE HYDROCHLORIDE
     Route: 058
  31. HYDROMORPHONE HYDROCHLORIDE [Suspect]
     Active Substance: HYDROMORPHONE HYDROCHLORIDE
     Route: 058
  32. HYDROMORPHONE HYDROCHLORIDE [Suspect]
     Active Substance: HYDROMORPHONE HYDROCHLORIDE
     Route: 058
  33. HYDROMORPHONE HYDROCHLORIDE [Suspect]
     Active Substance: HYDROMORPHONE HYDROCHLORIDE
     Route: 058
  34. HYDROMORPHONE HYDROCHLORIDE [Suspect]
     Active Substance: HYDROMORPHONE HYDROCHLORIDE
     Route: 058
  35. HYDROMORPHONE HYDROCHLORIDE [Suspect]
     Active Substance: HYDROMORPHONE HYDROCHLORIDE
     Route: 058
  36. METRONIDAZOLE [Suspect]
     Active Substance: METRONIDAZOLE
     Indication: Bacterial infection
     Route: 048
  37. METRONIDAZOLE [Suspect]
     Active Substance: METRONIDAZOLE
     Route: 048
  38. METRONIDAZOLE [Suspect]
     Active Substance: METRONIDAZOLE
     Route: 048
  39. METRONIDAZOLE [Suspect]
     Active Substance: METRONIDAZOLE
     Route: 048
  40. METRONIDAZOLE [Suspect]
     Active Substance: METRONIDAZOLE
  41. METRONIDAZOLE [Suspect]
     Active Substance: METRONIDAZOLE
  42. METRONIDAZOLE [Suspect]
     Active Substance: METRONIDAZOLE
  43. METRONIDAZOLE [Suspect]
     Active Substance: METRONIDAZOLE
  44. METRONIDAZOLE [Suspect]
     Active Substance: METRONIDAZOLE
  45. METRONIDAZOLE [Suspect]
     Active Substance: METRONIDAZOLE
     Route: 048
  46. METRONIDAZOLE [Suspect]
     Active Substance: METRONIDAZOLE
  47. ALLOPURINOL [Suspect]
     Active Substance: ALLOPURINOL
     Indication: Product used for unknown indication
     Route: 048
  48. ALLOPURINOL [Suspect]
     Active Substance: ALLOPURINOL
     Indication: Off label use
  49. ALLOPURINOL [Suspect]
     Active Substance: ALLOPURINOL
     Indication: Intentional product misuse
  50. ALLOPURINOL [Suspect]
     Active Substance: ALLOPURINOL
     Indication: Blood uric acid increased
  51. CEFTRIAXONE SODIUM [Suspect]
     Active Substance: CEFTRIAXONE SODIUM
     Indication: Bacterial infection
     Route: 042
  52. CEFTRIAXONE SODIUM [Suspect]
     Active Substance: CEFTRIAXONE SODIUM
  53. CEFTRIAXONE SODIUM [Suspect]
     Active Substance: CEFTRIAXONE SODIUM
  54. CEFTRIAXONE SODIUM [Suspect]
     Active Substance: CEFTRIAXONE SODIUM
     Indication: Bacterial infection
     Route: 042
  55. DOBUTAMINE [Suspect]
     Active Substance: DOBUTAMINE HYDROCHLORIDE
     Indication: Product used for unknown indication
     Route: 042
  56. DOBUTAMINE [Suspect]
     Active Substance: DOBUTAMINE HYDROCHLORIDE
     Indication: Off label use
  57. DOBUTAMINE [Suspect]
     Active Substance: DOBUTAMINE HYDROCHLORIDE
     Indication: Cardiogenic shock
  58. DOBUTAMINE [Suspect]
     Active Substance: DOBUTAMINE HYDROCHLORIDE
     Route: 042
  59. GABAPENTIN [Suspect]
     Active Substance: GABAPENTIN
     Indication: Product used for unknown indication
     Route: 048
  60. GABAPENTIN [Suspect]
     Active Substance: GABAPENTIN
     Indication: Off label use
     Route: 048
  61. GABAPENTIN [Suspect]
     Active Substance: GABAPENTIN
     Indication: Neuralgia
     Route: 048
  62. GABAPENTIN [Suspect]
     Active Substance: GABAPENTIN
     Indication: Intentional product misuse
     Route: 048
  63. GABAPENTIN [Suspect]
     Active Substance: GABAPENTIN
  64. HEPARIN SODIUM [Suspect]
     Active Substance: HEPARIN SODIUM
     Indication: Product used for unknown indication
     Route: 042
  65. HEPARIN SODIUM [Suspect]
     Active Substance: HEPARIN SODIUM
     Indication: Anticoagulant therapy
  66. HEPARIN SODIUM [Suspect]
     Active Substance: HEPARIN SODIUM
     Indication: Product used for unknown indication
     Route: 042
  67. HEPARIN SODIUM [Suspect]
     Active Substance: HEPARIN SODIUM
     Indication: Anticoagulant therapy
     Dosage: SOLUTION FOR INJECTION/INFUSION
     Route: 042
  68. HEPARIN SODIUM [Suspect]
     Active Substance: HEPARIN SODIUM
     Dosage: SOLUTION FOR INJECTION/INFUSION
     Route: 017
  69. HEPARIN SODIUM [Suspect]
     Active Substance: HEPARIN SODIUM
     Route: 017
  70. HEPARIN SODIUM [Suspect]
     Active Substance: HEPARIN SODIUM
     Dosage: SOLUTION FOR INJECTION/INFUSION
     Route: 017
  71. HEPARIN SODIUM [Suspect]
     Active Substance: HEPARIN SODIUM
     Route: 042
  72. HEPARIN SODIUM [Suspect]
     Active Substance: HEPARIN SODIUM
     Route: 042
  73. HEPARIN SODIUM [Suspect]
     Active Substance: HEPARIN SODIUM
     Route: 042
  74. HEPARIN SODIUM [Suspect]
     Active Substance: HEPARIN SODIUM
     Route: 017
  75. HEPARIN SODIUM [Suspect]
     Active Substance: HEPARIN SODIUM
     Dosage: SOLUTION FOR INJECTION/INFUSION
     Route: 042
  76. HEPARIN SODIUM [Suspect]
     Active Substance: HEPARIN SODIUM
     Dosage: SOLUTION FOR INJECTION/INFUSION
     Route: 042
  77. HEPARIN SODIUM [Suspect]
     Active Substance: HEPARIN SODIUM
  78. ALBUTEROL [Suspect]
     Active Substance: ALBUTEROL
     Indication: Product used for unknown indication
     Dosage: INHALATION
  79. ALBUTEROL [Suspect]
     Active Substance: ALBUTEROL
     Indication: Off label use
  80. ALBUTEROL [Suspect]
     Active Substance: ALBUTEROL
     Indication: Intentional product misuse
  81. ALBUTEROL [Suspect]
     Active Substance: ALBUTEROL
     Indication: Chronic obstructive pulmonary disease
     Dosage: INHALATION
  82. ALBUTEROL [Suspect]
     Active Substance: ALBUTEROL
  83. ALBUTEROL [Suspect]
     Active Substance: ALBUTEROL
  84. ALBUTEROL [Suspect]
     Active Substance: ALBUTEROL
     Dosage: INHALATION
  85. ALBUTEROL [Suspect]
     Active Substance: ALBUTEROL
  86. ALBUTEROL [Suspect]
     Active Substance: ALBUTEROL
  87. ALBUTEROL [Suspect]
     Active Substance: ALBUTEROL
  88. ALBUTEROL [Suspect]
     Active Substance: ALBUTEROL
  89. ALBUTEROL [Suspect]
     Active Substance: ALBUTEROL
  90. ALBUTEROL [Suspect]
     Active Substance: ALBUTEROL
     Dosage: INHALATION
  91. ALBUTEROL [Suspect]
     Active Substance: ALBUTEROL
  92. ALBUTEROL [Suspect]
     Active Substance: ALBUTEROL
  93. ALBUTEROL [Suspect]
     Active Substance: ALBUTEROL
  94. ALBUTEROL [Suspect]
     Active Substance: ALBUTEROL
  95. ALBUTEROL [Suspect]
     Active Substance: ALBUTEROL
  96. ALBUTEROL [Suspect]
     Active Substance: ALBUTEROL
  97. ALBUTEROL [Suspect]
     Active Substance: ALBUTEROL
  98. ALBUTEROL [Suspect]
     Active Substance: ALBUTEROL
  99. ALBUTEROL [Suspect]
     Active Substance: ALBUTEROL
  100. ALBUTEROL [Suspect]
     Active Substance: ALBUTEROL
     Dosage: INHALATION
  101. ALBUTEROL [Suspect]
     Active Substance: ALBUTEROL
  102. ALBUTEROL [Suspect]
     Active Substance: ALBUTEROL
  103. ALBUTEROL [Suspect]
     Active Substance: ALBUTEROL
  104. ALBUTEROL [Suspect]
     Active Substance: ALBUTEROL
  105. ALBUTEROL [Suspect]
     Active Substance: ALBUTEROL
  106. ALBUTEROL [Suspect]
     Active Substance: ALBUTEROL
  107. ALBUTEROL [Suspect]
     Active Substance: ALBUTEROL
  108. ALBUTEROL [Suspect]
     Active Substance: ALBUTEROL
  109. ALBUTEROL [Suspect]
     Active Substance: ALBUTEROL
  110. ALBUTEROL [Suspect]
     Active Substance: ALBUTEROL
  111. ALBUTEROL [Suspect]
     Active Substance: ALBUTEROL
     Dosage: INHALATION
  112. ALBUTEROL [Suspect]
     Active Substance: ALBUTEROL
  113. ALBUTEROL [Suspect]
     Active Substance: ALBUTEROL
  114. ALBUTEROL [Suspect]
     Active Substance: ALBUTEROL
  115. ALBUTEROL [Suspect]
     Active Substance: ALBUTEROL
     Dosage: INHALATION
  116. ALBUTEROL [Suspect]
     Active Substance: ALBUTEROL
     Dosage: INHALATION
  117. ALBUTEROL [Suspect]
     Active Substance: ALBUTEROL
  118. ALBUTEROL [Suspect]
     Active Substance: ALBUTEROL
  119. LANSOPRAZOLE [Suspect]
     Active Substance: LANSOPRAZOLE
     Indication: Off label use
     Dosage: CAPSULE DELAYED RELEASE
     Route: 048
  120. LANSOPRAZOLE [Suspect]
     Active Substance: LANSOPRAZOLE
     Indication: Intentional product misuse
     Route: 048
  121. LANSOPRAZOLE [Suspect]
     Active Substance: LANSOPRAZOLE
     Indication: Antacid therapy
     Route: 048
  122. THEOPHYLLINE [Suspect]
     Active Substance: THEOPHYLLINE
     Indication: Off label use
  123. THEOPHYLLINE [Suspect]
     Active Substance: THEOPHYLLINE
     Indication: Intentional product misuse
  124. THEOPHYLLINE [Suspect]
     Active Substance: THEOPHYLLINE
  125. THEOPHYLLINE [Suspect]
     Active Substance: THEOPHYLLINE
  126. THEOPHYLLINE [Suspect]
     Active Substance: THEOPHYLLINE
  127. THEOPHYLLINE [Suspect]
     Active Substance: THEOPHYLLINE
  128. THEOPHYLLINE [Suspect]
     Active Substance: THEOPHYLLINE
  129. THEOPHYLLINE [Suspect]
     Active Substance: THEOPHYLLINE
  130. THEOPHYLLINE [Suspect]
     Active Substance: THEOPHYLLINE
  131. VASOPRESSIN [Suspect]
     Active Substance: VASOPRESSIN
     Indication: Thrombosis
  132. VASOPRESSIN [Suspect]
     Active Substance: VASOPRESSIN
     Indication: Drug therapy
  133. VASOPRESSIN [Suspect]
     Active Substance: VASOPRESSIN
     Route: 017
  134. VASOPRESSIN [Suspect]
     Active Substance: VASOPRESSIN
     Route: 042
  135. VASOPRESSIN [Suspect]
     Active Substance: VASOPRESSIN
     Route: 042
  136. VASOPRESSIN [Suspect]
     Active Substance: VASOPRESSIN
     Route: 042
  137. AMIODARONE [Suspect]
     Active Substance: AMIODARONE
     Indication: Ventricular fibrillation
     Route: 042
  138. AMIODARONE [Suspect]
     Active Substance: AMIODARONE
     Indication: Product used for unknown indication
     Route: 042
  139. AMIODARONE [Suspect]
     Active Substance: AMIODARONE
     Indication: Off label use
     Route: 042
  140. AMIODARONE [Suspect]
     Active Substance: AMIODARONE
     Indication: Intentional product misuse
  141. AMIODARONE [Suspect]
     Active Substance: AMIODARONE
     Indication: Drug therapy
     Route: 042
  142. AMIODARONE [Suspect]
     Active Substance: AMIODARONE
  143. AMIODARONE [Suspect]
     Active Substance: AMIODARONE
     Route: 042
  144. AMIODARONE [Suspect]
     Active Substance: AMIODARONE
  145. AMIODARONE [Suspect]
     Active Substance: AMIODARONE
  146. AMIODARONE [Suspect]
     Active Substance: AMIODARONE
  147. AMIODARONE [Suspect]
     Active Substance: AMIODARONE
  148. AMIODARONE [Suspect]
     Active Substance: AMIODARONE
  149. AMIODARONE [Suspect]
     Active Substance: AMIODARONE
  150. AMIODARONE [Suspect]
     Active Substance: AMIODARONE
  151. AMIODARONE [Suspect]
     Active Substance: AMIODARONE
  152. DOCUSATE SODIUM [Suspect]
     Active Substance: DOCUSATE SODIUM
     Indication: Product used for unknown indication
  153. ONDANSETRON [Suspect]
     Active Substance: ONDANSETRON
     Indication: Vomiting
     Route: 042
  154. ONDANSETRON [Suspect]
     Active Substance: ONDANSETRON
     Indication: Product used for unknown indication
     Route: 042
  155. ONDANSETRON [Suspect]
     Active Substance: ONDANSETRON
     Indication: Off label use
     Route: 042
  156. ONDANSETRON [Suspect]
     Active Substance: ONDANSETRON
     Indication: Nausea
     Route: 042
  157. ONDANSETRON [Suspect]
     Active Substance: ONDANSETRON
     Route: 042
  158. ONDANSETRON [Suspect]
     Active Substance: ONDANSETRON
     Route: 042
  159. ONDANSETRON [Suspect]
     Active Substance: ONDANSETRON
     Route: 042
  160. ONDANSETRON [Suspect]
     Active Substance: ONDANSETRON
     Route: 042
  161. ONDANSETRON [Suspect]
     Active Substance: ONDANSETRON
     Route: 042
  162. ONDANSETRON [Suspect]
     Active Substance: ONDANSETRON
  163. ONDANSETRON [Suspect]
     Active Substance: ONDANSETRON
     Route: 042
  164. ONDANSETRON [Suspect]
     Active Substance: ONDANSETRON
  165. ONDANSETRON [Suspect]
     Active Substance: ONDANSETRON
  166. ONDANSETRON [Suspect]
     Active Substance: ONDANSETRON
     Route: 042
  167. ONDANSETRON [Suspect]
     Active Substance: ONDANSETRON
     Route: 042
  168. ONDANSETRON [Suspect]
     Active Substance: ONDANSETRON
     Route: 042
  169. ONDANSETRON [Suspect]
     Active Substance: ONDANSETRON
     Route: 012
  170. ONDANSETRON [Suspect]
     Active Substance: ONDANSETRON
     Route: 042
  171. ONDANSETRON [Suspect]
     Active Substance: ONDANSETRON
     Route: 042
  172. ONDANSETRON [Suspect]
     Active Substance: ONDANSETRON
     Route: 042
  173. ONDANSETRON [Suspect]
     Active Substance: ONDANSETRON
     Route: 042
  174. ONDANSETRON [Suspect]
     Active Substance: ONDANSETRON
     Route: 042
  175. ONDANSETRON [Suspect]
     Active Substance: ONDANSETRON
     Route: 042
  176. ONDANSETRON [Suspect]
     Active Substance: ONDANSETRON
     Route: 042
  177. ONDANSETRON [Suspect]
     Active Substance: ONDANSETRON
     Route: 042
  178. ONDANSETRON [Suspect]
     Active Substance: ONDANSETRON
  179. ONDANSETRON [Suspect]
     Active Substance: ONDANSETRON
     Route: 042
  180. ONDANSETRON [Suspect]
     Active Substance: ONDANSETRON
     Route: 042
  181. ONDANSETRON [Suspect]
     Active Substance: ONDANSETRON
     Route: 048
  182. ONDANSETRON [Suspect]
     Active Substance: ONDANSETRON
     Route: 048
  183. ONDANSETRON [Suspect]
     Active Substance: ONDANSETRON
     Route: 042
  184. ONDANSETRON [Suspect]
     Active Substance: ONDANSETRON
     Route: 042
  185. ONDANSETRON [Suspect]
     Active Substance: ONDANSETRON
     Route: 042
  186. ONDANSETRON [Suspect]
     Active Substance: ONDANSETRON
     Route: 042
  187. ONDANSETRON [Suspect]
     Active Substance: ONDANSETRON
     Route: 042
  188. ONDANSETRON [Suspect]
     Active Substance: ONDANSETRON
     Route: 042
  189. ONDANSETRON [Suspect]
     Active Substance: ONDANSETRON
     Route: 042
  190. SODIUM BICARBONATE [Suspect]
     Active Substance: SODIUM BICARBONATE
     Indication: Constipation
  191. SIMVASTATIN [Suspect]
     Active Substance: SIMVASTATIN
     Indication: Vitamin supplementation
  192. SIMVASTATIN [Suspect]
     Active Substance: SIMVASTATIN
     Indication: Product used for unknown indication
  193. SIMVASTATIN [Suspect]
     Active Substance: SIMVASTATIN
     Indication: Off label use
     Route: 048
  194. SIMVASTATIN [Suspect]
     Active Substance: SIMVASTATIN
     Indication: Blood cholesterol increased
     Route: 048
  195. SIMVASTATIN [Suspect]
     Active Substance: SIMVASTATIN
  196. VITAMIN C [Suspect]
     Active Substance: ASCORBIC ACID
     Indication: Constipation
     Route: 048
  197. VITAMIN K1 [Suspect]
     Active Substance: PHYTONADIONE
     Indication: Vitamin supplementation
     Route: 042
  198. VITAMIN K1 [Suspect]
     Active Substance: PHYTONADIONE
     Route: 042
  199. VITAMIN K1 [Suspect]
     Active Substance: PHYTONADIONE
  200. VITAMIN K1 [Suspect]
     Active Substance: PHYTONADIONE
     Route: 042

REACTIONS (8)
  - End stage renal disease [Fatal]
  - Activated partial thromboplastin time prolonged [Fatal]
  - Abdominal pain [Fatal]
  - Analgesic therapy [Fatal]
  - Anticoagulant therapy [Fatal]
  - Abdominal distension [Fatal]
  - Anaemia [Fatal]
  - Antacid therapy [Fatal]
